FAERS Safety Report 11693970 (Version 1)
Quarter: 2015Q4

REPORT INFORMATION
  Report Type: Spontaneous
  Country: CN (occurrence: CN)
  Receive Date: 20151103
  Receipt Date: 20151103
  Transmission Date: 20160304
  Serious: Yes (Death, Other)
  Sender: FDA-Public Use
  Company Number: CN-BAYER-2015-451183

PATIENT
  Age: 59 Year
  Sex: Male

DRUGS (2)
  1. SORAFENIB (RAF KINASE INHIBITOR) [Suspect]
     Active Substance: SORAFENIB
     Indication: METASTASES TO LIVER
     Dosage: 200 MG, QD
     Route: 048
  2. SORAFENIB (RAF KINASE INHIBITOR) [Suspect]
     Active Substance: SORAFENIB
     Indication: GASTRIC CANCER
     Dosage: 400 MG, QD
     Route: 048
     Dates: start: 201310, end: 201312

REACTIONS (4)
  - Drug ineffective for unapproved indication [None]
  - Disease progression [None]
  - Off label use [None]
  - Hypertension [None]

NARRATIVE: CASE EVENT DATE: 201312
